FAERS Safety Report 13084307 (Version 2)
Quarter: 2017Q1

REPORT INFORMATION
  Report Type: Spontaneous
  Country: US (occurrence: US)
  Receive Date: 20170104
  Receipt Date: 20170227
  Transmission Date: 20170428
  Serious: Yes (Other)
  Sender: FDA-Public Use
  Company Number: US-GLAXOSMITHKLINE-US2016GSK194993

PATIENT
  Age: 55 Year
  Sex: Female

DRUGS (1)
  1. TANZEUM [Suspect]
     Active Substance: ALBIGLUTIDE
     Indication: TYPE 2 DIABETES MELLITUS
     Dosage: 50 MG, WE
     Route: 042
     Dates: start: 201610

REACTIONS (9)
  - Mucosal dryness [Unknown]
  - Underdose [Unknown]
  - Rectal haemorrhage [Unknown]
  - Accidental exposure to product [Unknown]
  - Gingival bleeding [Unknown]
  - Noninfective gingivitis [Unknown]
  - Device leakage [Unknown]
  - Product quality issue [Unknown]
  - Device use error [Unknown]

NARRATIVE: CASE EVENT DATE: 201610
